FAERS Safety Report 23657617 (Version 1)
Quarter: 2024Q1

REPORT INFORMATION
  Report Type: Spontaneous
  Country: US (occurrence: None)
  Receive Date: 20240320
  Receipt Date: 20240320
  Transmission Date: 20240410
  Serious: No
  Sender: FDA-Public Use
  Company Number: None

PATIENT
  Age: 70 Year
  Sex: Male
  Weight: 96.75 kg

DRUGS (2)
  1. KIMYRSA [Suspect]
     Active Substance: ORITAVANCIN DIPHOSPHATE
     Indication: Cellulitis
     Dosage: FREQUENCY : ONCE;?
     Route: 041
     Dates: start: 20240320, end: 20240320
  2. KIMYRSA [Suspect]
     Active Substance: ORITAVANCIN DIPHOSPHATE
     Indication: Skin infection

REACTIONS (4)
  - Pruritus [None]
  - Rash [None]
  - Nasal congestion [None]
  - Infusion related reaction [None]

NARRATIVE: CASE EVENT DATE: 20240320
